FAERS Safety Report 4535389-6 (Version None)
Quarter: 2004Q4

REPORT INFORMATION
  Report Type: 
  Country: None (occurrence: None)
  Receive Date: 20041214
  Receipt Date: 20040921
  Transmission Date: 20050328
  Serious: No
  Sender: FDA-Public Use
  Company Number: 2004234664US

PATIENT
  Sex: Female

DRUGS (2)
  1. BEXTRA [Suspect]
     Indication: ARTHRITIS
     Dosage: 20 MG, QD
     Dates: start: 20040901, end: 20040920
  2. UNSPECIFIED BLOOD PRESSURE MEDICATIONS [Concomitant]

REACTIONS (4)
  - DIARRHOEA [None]
  - EYELID OEDEMA [None]
  - FACE OEDEMA [None]
  - VISION BLURRED [None]
